FAERS Safety Report 8311445-1 (Version None)
Quarter: 2012Q1

REPORT INFORMATION
  Report Type: 
  Country: None (occurrence: None)
  Receive Date: 20120315
  Receipt Date: 20101221
  Transmission Date: 20120608
  Serious: No
  Sender: FDA-Public Use
  Company Number: PHHY2010US72178

PATIENT
  Age: 56 Year
  Sex: Female

DRUGS (6)
  1. LISINOPRIL [Concomitant]
  2. GILENYA [Suspect]
     Indication: MULTIPLE SCLEROSIS RELAPSE
     Dosage: 0.5 MG, QD, ORAL
     Route: 048
     Dates: start: 20101025
  3. CALCIUM CARBONATE [Concomitant]
  4. MULTI-VITAMINS [Concomitant]
  5. ZANAFLEX [Concomitant]
  6. VITAMIN B12 [Concomitant]

REACTIONS (3)
  - COORDINATION ABNORMAL [None]
  - HYPOAESTHESIA [None]
  - SINUS ARRHYTHMIA [None]
